FAERS Safety Report 23081144 (Version 1)
Quarter: 2023Q4

REPORT INFORMATION
  Report Type: Report from Study
  Country: US (occurrence: US)
  Receive Date: 20231018
  Receipt Date: 20231018
  Transmission Date: 20240110
  Serious: Yes (Other)
  Sender: FDA-Public Use
  Company Number: US-TAIHOP-2023-008326

PATIENT
  Age: 63 Year
  Sex: Female
  Weight: 116.66 kg

DRUGS (1)
  1. LONSURF [Suspect]
     Active Substance: TIPIRACIL HYDROCHLORIDE\TRIFLURIDINE
     Indication: Gastric cancer
     Dosage: CYCLE 1 STARTED ON 09/SEP/2023, CURRENT CYCLE AND FORM STRENGTH UNKNOWN
     Route: 048
     Dates: start: 20230909

REACTIONS (10)
  - Dehydration [Unknown]
  - Anaemia [Unknown]
  - Abdominal pain upper [Unknown]
  - White blood cell count decreased [Unknown]
  - Dizziness [Unknown]
  - Bowel movement irregularity [Unknown]
  - Dysuria [Unknown]
  - Asthenia [Unknown]
  - Nausea [Unknown]
  - Pruritus genital [Unknown]
